FAERS Safety Report 25457753 (Version 1)
Quarter: 2025Q2

REPORT INFORMATION
  Report Type: Spontaneous
  Country: CN (occurrence: CN)
  Receive Date: 20250619
  Receipt Date: 20250619
  Transmission Date: 20250716
  Serious: Yes (Other)
  Sender: BEIGENE
  Company Number: CN-BEIGENE-BGN-2025-009614

PATIENT
  Age: 71 Year
  Weight: 41.5 kg

DRUGS (34)
  1. TISLELIZUMAB [Suspect]
     Active Substance: TISLELIZUMAB
     Indication: Gastric cancer
  2. TISLELIZUMAB [Suspect]
     Active Substance: TISLELIZUMAB
     Route: 041
  3. TISLELIZUMAB [Suspect]
     Active Substance: TISLELIZUMAB
     Route: 041
  4. TISLELIZUMAB [Suspect]
     Active Substance: TISLELIZUMAB
  5. TISLELIZUMAB [Suspect]
     Active Substance: TISLELIZUMAB
  6. TISLELIZUMAB [Suspect]
     Active Substance: TISLELIZUMAB
     Route: 041
  7. TISLELIZUMAB [Suspect]
     Active Substance: TISLELIZUMAB
  8. TISLELIZUMAB [Suspect]
     Active Substance: TISLELIZUMAB
     Route: 041
  9. TISLELIZUMAB [Suspect]
     Active Substance: TISLELIZUMAB
  10. TISLELIZUMAB [Suspect]
     Active Substance: TISLELIZUMAB
  11. TISLELIZUMAB [Suspect]
     Active Substance: TISLELIZUMAB
     Route: 041
  12. TISLELIZUMAB [Suspect]
     Active Substance: TISLELIZUMAB
     Route: 041
  13. TISLELIZUMAB [Suspect]
     Active Substance: TISLELIZUMAB
     Route: 041
  14. TISLELIZUMAB [Suspect]
     Active Substance: TISLELIZUMAB
     Route: 041
  15. TISLELIZUMAB [Suspect]
     Active Substance: TISLELIZUMAB
  16. TISLELIZUMAB [Suspect]
     Active Substance: TISLELIZUMAB
  17. TISLELIZUMAB [Suspect]
     Active Substance: TISLELIZUMAB
  18. TISLELIZUMAB [Suspect]
     Active Substance: TISLELIZUMAB
  19. TISLELIZUMAB [Suspect]
     Active Substance: TISLELIZUMAB
     Route: 041
  20. TISLELIZUMAB [Suspect]
     Active Substance: TISLELIZUMAB
     Route: 041
  21. CAPECITABINE [Suspect]
     Active Substance: CAPECITABINE
     Indication: Gastric cancer
     Dosage: 1.5 GRAM, BID
  22. CAPECITABINE [Suspect]
     Active Substance: CAPECITABINE
     Dosage: 1.5 GRAM, BID
  23. CAPECITABINE [Suspect]
     Active Substance: CAPECITABINE
     Dosage: 1.5 GRAM, BID
  24. CAPECITABINE [Suspect]
     Active Substance: CAPECITABINE
     Dosage: 1.5 GRAM, BID
  25. CAPECITABINE [Suspect]
     Active Substance: CAPECITABINE
     Dosage: 1.5 GRAM, BID
  26. CAPECITABINE [Suspect]
     Active Substance: CAPECITABINE
     Dosage: 1.5 GRAM, BID
  27. CAPECITABINE [Suspect]
     Active Substance: CAPECITABINE
     Dosage: 1.5 GRAM, BID
     Route: 048
  28. OXALIPLATIN [Suspect]
     Active Substance: OXALIPLATIN
     Indication: Gastric cancer
  29. OXALIPLATIN [Suspect]
     Active Substance: OXALIPLATIN
  30. OXALIPLATIN [Suspect]
     Active Substance: OXALIPLATIN
  31. OXALIPLATIN [Suspect]
     Active Substance: OXALIPLATIN
  32. OXALIPLATIN [Suspect]
     Active Substance: OXALIPLATIN
  33. OXALIPLATIN [Suspect]
     Active Substance: OXALIPLATIN
  34. OXALIPLATIN [Suspect]
     Active Substance: OXALIPLATIN
     Route: 041

REACTIONS (1)
  - Myelosuppression [Recovering/Resolving]
